FAERS Safety Report 24114110 (Version 1)
Quarter: 2024Q3

REPORT INFORMATION
  Report Type: Spontaneous
  Country: US (occurrence: US)
  Receive Date: 20240720
  Receipt Date: 20240720
  Transmission Date: 20241017
  Serious: No
  Sender: TAKEDA
  Company Number: US-TAKEDA-2024TUS071366

PATIENT
  Age: 17 Year
  Sex: Female
  Weight: 58.967 kg

DRUGS (8)
  1. GAMMAGARD LIQUID [Suspect]
     Active Substance: HUMAN IMMUNOGLOBULIN G
     Indication: Systemic scleroderma
     Dosage: 1 GRAM, Q2WEEKS
     Route: 042
     Dates: start: 20240606
  2. GAMMAGARD LIQUID [Suspect]
     Active Substance: HUMAN IMMUNOGLOBULIN G
     Dosage: 5 GRAM, Q2WEEKS
     Route: 042
  3. GAMMAGARD LIQUID [Suspect]
     Active Substance: HUMAN IMMUNOGLOBULIN G
     Dosage: 30 GRAM, Q2WEEKS
     Route: 042
  4. GAMMAGARD LIQUID [Suspect]
     Active Substance: HUMAN IMMUNOGLOBULIN G
     Dosage: 67 GRAM, Q2WEEKS
     Route: 042
  5. ACETAMINOPHEN [Concomitant]
     Active Substance: ACETAMINOPHEN
     Dosage: 325 MILLIGRAM
     Route: 048
  6. KETOROLAC TROMETHAMINE [Concomitant]
     Active Substance: KETOROLAC TROMETHAMINE
     Dosage: 15 MILLIGRAM
     Route: 042
  7. DIPHENHYDRAMINE [Concomitant]
     Active Substance: DIPHENHYDRAMINE
     Dosage: 25 MILLIGRAM
     Route: 048
  8. METHYLPREDNISOLONE [Concomitant]
     Active Substance: METHYLPREDNISOLONE
     Dosage: 15 MILLIGRAM
     Route: 042

REACTIONS (12)
  - Eating disorder [Recovering/Resolving]
  - Liver function test abnormal [Unknown]
  - Blood electrolytes abnormal [Unknown]
  - Blood magnesium decreased [Unknown]
  - Blood phosphorus increased [Unknown]
  - Incorrect drug administration rate [Unknown]
  - Off label use [Unknown]
  - Feeling abnormal [Unknown]
  - Red blood cell count decreased [Unknown]
  - Vomiting [Unknown]
  - Headache [Unknown]
  - Asthenia [Unknown]

NARRATIVE: CASE EVENT DATE: 20240601
